FAERS Safety Report 19811371 (Version 1)
Quarter: 2021Q3

REPORT INFORMATION
  Report Type: Report from Study
  Country: None (occurrence: US)
  Receive Date: 20210910
  Receipt Date: 20210910
  Transmission Date: 20211014
  Serious: Yes (Other)
  Sender: FDA-Public Use
  Company Number: US-ABBVIE-21K-163-4071533-00

PATIENT
  Sex: Female

DRUGS (1)
  1. RINVOQ [Suspect]
     Active Substance: UPADACITINIB
     Indication: RHEUMATOID ARTHRITIS
     Route: 048

REACTIONS (7)
  - Fall [Unknown]
  - Macular degeneration [Recovered/Resolved]
  - Arthralgia [Not Recovered/Not Resolved]
  - Hypotension [Recovered/Resolved]
  - Bladder disorder [Not Recovered/Not Resolved]
  - Renal disorder [Unknown]
  - Dysuria [Unknown]

NARRATIVE: CASE EVENT DATE: 2021
